FAERS Safety Report 12491754 (Version 1)
Quarter: 2016Q2

REPORT INFORMATION
  Report Type: Other
  Country: ES (occurrence: ES)
  Receive Date: 20160623
  Receipt Date: 20160623
  Transmission Date: 20160815
  Serious: Yes (Other)
  Sender: FDA-Public Use
  Company Number: ES-LUPIN PHARMACEUTICALS INC.-2016-02706

PATIENT
  Age: 72 Year
  Sex: Male

DRUGS (4)
  1. CIPROFLOXACIN. [Suspect]
     Active Substance: CIPROFLOXACIN
     Indication: PSORIATIC ARTHROPATHY
     Route: 065
  2. CIPROFLOXACIN. [Interacting]
     Active Substance: CIPROFLOXACIN
     Indication: KNEE ARTHROPLASTY
  3. METHOTREXATE [Interacting]
     Active Substance: METHOTREXATE
     Indication: PSORIATIC ARTHROPATHY
     Route: 065
  4. METHOTREXATE [Interacting]
     Active Substance: METHOTREXATE
     Indication: KNEE ARTHROPLASTY

REACTIONS (4)
  - Skin ulcer [Recovered/Resolved]
  - Drug interaction [Unknown]
  - Toxic epidermal necrolysis [Recovered/Resolved]
  - Bone marrow failure [Recovered/Resolved]
